FAERS Safety Report 8555073-1 (Version None)
Quarter: 2012Q3

REPORT INFORMATION
  Report Type: 
  Country: None (occurrence: None)
  Receive Date: 20120731
  Receipt Date: 20120723
  Transmission Date: 20120928
  Serious: Yes (Hospitalization)
  Sender: FDA-Public Use
  Company Number: JP-BAXTER-2012BAX006825

PATIENT
  Age: 65 Year
  Sex: Female

DRUGS (8)
  1. LEVOFLOXACIN [Concomitant]
     Indication: CYTOMEGALOVIRUS INFECTION
     Dates: start: 20091110, end: 20091116
  2. PREDNISOLONE [Suspect]
     Route: 048
     Dates: start: 20070702
  3. CYCLOPHOSPHAMIDE [Suspect]
     Indication: IDIOPATHIC PULMONARY FIBROSIS
     Route: 048
     Dates: start: 20080722, end: 20091116
  4. PREDNISOLONE [Suspect]
     Indication: IDIOPATHIC PULMONARY FIBROSIS
     Route: 048
     Dates: start: 20070702
  5. FAMOTIDINE [Concomitant]
     Indication: PROPHYLAXIS
     Route: 048
  6. SULFAMETHOXAZOLE AND TRIMETHOPRIM [Concomitant]
     Dosage: 1 DOSAGE FORM
     Route: 048
  7. PIRFENIDONE [Suspect]
     Indication: IDIOPATHIC PULMONARY FIBROSIS
     Route: 048
     Dates: start: 20091106, end: 20091118
  8. ALENDRONATE SODIUM [Concomitant]
     Indication: PROPHYLAXIS
     Route: 048

REACTIONS (2)
  - CYTOMEGALOVIRUS INFECTION [None]
  - PANCYTOPENIA [None]
